FAERS Safety Report 18330293 (Version 1)
Quarter: 2020Q3

REPORT INFORMATION
  Report Type: Spontaneous
  Country: US (occurrence: US)
  Receive Date: 20200930
  Receipt Date: 20200930
  Transmission Date: 20201103
  Serious: Yes (Death)
  Sender: FDA-Public Use
  Company Number: None

PATIENT
  Sex: Male

DRUGS (12)
  1. ATORVASTATIN [Concomitant]
     Active Substance: ATORVASTATIN
  2. DEXAMETHASONE. [Concomitant]
     Active Substance: DEXAMETHASONE
  3. MIRABEGRON [Concomitant]
     Active Substance: MIRABEGRON
  4. EVEROLIMUS. [Concomitant]
     Active Substance: EVEROLIMUS
  5. LEVETIRACETAM. [Concomitant]
     Active Substance: LEVETIRACETAM
  6. LOSARTAN. [Concomitant]
     Active Substance: LOSARTAN
  7. ACETAMINOPHEN. [Concomitant]
     Active Substance: ACETAMINOPHEN
  8. ACYCLOVIR. [Concomitant]
     Active Substance: ACYCLOVIR
  9. VEMLIDY [Suspect]
     Active Substance: TENOFOVIR ALAFENAMIDE FUMARATE
     Indication: CHRONIC HEPATITIS B
     Route: 048
     Dates: start: 20180718, end: 20200622
  10. AZELASTINE. [Concomitant]
     Active Substance: AZELASTINE HYDROCHLORIDE
  11. URSODIOL. [Concomitant]
     Active Substance: URSODIOL
  12. FUROSEMIDE. [Concomitant]
     Active Substance: FUROSEMIDE

REACTIONS (1)
  - Death [None]
